FAERS Safety Report 8461555-3 (Version None)
Quarter: 2012Q2

REPORT INFORMATION
  Report Type: 
  Country: None (occurrence: None)
  Receive Date: 20120618
  Receipt Date: 20120606
  Transmission Date: 20120825
  Serious: Yes (Other)
  Sender: FDA-Public Use
  Company Number: 2012P1041503

PATIENT
  Age: 63 Year
  Sex: Male

DRUGS (4)
  1. FAMOTIDINE [Suspect]
  2. ITRACONAZOLE [Suspect]
     Indication: BRONCHOPULMONARY ASPERGILLOSIS
     Dosage: 50 MG;QD;PO  : 100 MG;QD;PO
     Route: 048
  3. CEFCAPENE PIVOXIL HYDROCHLORIDE [Concomitant]
  4. PREDNISOLONE [Concomitant]

REACTIONS (3)
  - PHAEHYPHOMYCOSIS [None]
  - DRUG INEFFECTIVE [None]
  - DRUG INTERACTION [None]
